FAERS Safety Report 14915638 (Version 1)
Quarter: 2018Q2

REPORT INFORMATION
  Report Type: Report from Study
  Country: VE (occurrence: VE)
  Receive Date: 20180518
  Receipt Date: 20180518
  Transmission Date: 20180711
  Serious: Yes (Hospitalization, Disabling, Other)
  Sender: FDA-Public Use
  Company Number: PHHY2017VE165776

PATIENT
  Age: 44 Year
  Sex: Female
  Weight: 70 kg

DRUGS (3)
  1. GILENYA [Suspect]
     Active Substance: FINGOLIMOD HYDROCHLORIDE
     Dosage: 0.5 MG, QD
     Route: 065
     Dates: start: 201609, end: 201705
  2. VITAMIN E [Concomitant]
     Active Substance: .ALPHA.-TOCOPHEROL
     Indication: PRODUCT USED FOR UNKNOWN INDICATION
     Dosage: 2000 IU, QD
     Route: 065
  3. GILENYA [Suspect]
     Active Substance: FINGOLIMOD HYDROCHLORIDE
     Indication: MULTIPLE SCLEROSIS
     Dosage: 0.5 MG, QD
     Route: 065
     Dates: start: 201110, end: 201607

REACTIONS (39)
  - Somnolence [Unknown]
  - Nausea [Unknown]
  - Pollakiuria [Unknown]
  - Affect lability [Unknown]
  - White blood cells urine [Unknown]
  - Vertigo positional [Unknown]
  - Monoparesis [Unknown]
  - Stenosis [Unknown]
  - Depression [Unknown]
  - Dysarthria [Recovering/Resolving]
  - Hypoaesthesia [Unknown]
  - Paraesthesia [Unknown]
  - Hemianopia homonymous [Unknown]
  - Optic atrophy [Unknown]
  - Bacterial test positive [Unknown]
  - Tremor [Not Recovered/Not Resolved]
  - Gait disturbance [Recovering/Resolving]
  - Muscle spasms [Unknown]
  - Coordination abnormal [Recovering/Resolving]
  - Protein urine present [Unknown]
  - Urinary sediment present [Unknown]
  - Multiple sclerosis relapse [Not Recovered/Not Resolved]
  - Postural tremor [Unknown]
  - Back pain [Unknown]
  - Neutrophil count increased [Unknown]
  - Urine abnormality [Unknown]
  - Aspartate aminotransferase increased [Unknown]
  - Paraesthesia oral [Unknown]
  - Dysstasia [Unknown]
  - Ataxia [Unknown]
  - Genital paraesthesia [Unknown]
  - Spinal osteoarthritis [Unknown]
  - Red blood cell count increased [Unknown]
  - Vertigo [Unknown]
  - Paresis [Unknown]
  - Muscular weakness [Not Recovered/Not Resolved]
  - Hypotonia [Unknown]
  - Myelitis transverse [Unknown]
  - Feeling abnormal [Unknown]

NARRATIVE: CASE EVENT DATE: 201609
